FAERS Safety Report 9469286 (Version 1)
Quarter: 2013Q3

REPORT INFORMATION
  Report Type: Spontaneous
  Country: US (occurrence: US)
  Receive Date: 20130821
  Receipt Date: 20130821
  Transmission Date: 20140515
  Serious: No
  Sender: FDA-Public Use
  Company Number: US-009507513-1308USA003750

PATIENT
  Age: 55 Year
  Sex: Male

DRUGS (1)
  1. VICTRELIS [Suspect]
     Dosage: 800 MG, TID
     Route: 048
     Dates: start: 20130517

REACTIONS (2)
  - Leukopenia [Unknown]
  - Immune system disorder [Unknown]
